FAERS Safety Report 5971387-3 (Version None)
Quarter: 2008Q4

REPORT INFORMATION
  Report Type: 
  Country: None (occurrence: None)
  Receive Date: 20081130
  Receipt Date: 20081124
  Transmission Date: 20090506
  Serious: Yes (Other)
  Sender: FDA-Public Use
  Company Number: BR-PFIZER INC-2008099475

PATIENT
  Sex: Female
  Weight: 78 kg

DRUGS (5)
  1. FRONTAL [Suspect]
     Indication: ANXIETY
     Route: 048
     Dates: start: 20030101
  2. MONOCORDIL [Concomitant]
     Route: 065
     Dates: start: 20020101
  3. SUSTRATE [Concomitant]
     Route: 065
     Dates: start: 20020101
  4. SIMVASTATIN [Concomitant]
     Route: 065
     Dates: start: 20020101
  5. ACETYLSALICYLIC ACID SRT [Concomitant]
     Route: 065
     Dates: start: 20020101

REACTIONS (4)
  - IRRITABILITY [None]
  - MYOCARDIAL INFARCTION [None]
  - SLEEP DISORDER [None]
  - STENT PLACEMENT [None]
